FAERS Safety Report 21405442 (Version 2)
Quarter: 2022Q4

REPORT INFORMATION
  Report Type: Spontaneous
  Country: JP (occurrence: JP)
  Receive Date: 20221004
  Receipt Date: 20221019
  Transmission Date: 20230113
  Serious: Yes (Hospitalization, Other)
  Sender: FDA-Public Use
  Company Number: JP-SAKK-2022SA396156AA

PATIENT
  Age: 57 Year
  Sex: Female

DRUGS (2)
  1. DOCETAXEL [Suspect]
     Active Substance: DOCETAXEL
     Indication: Breast cancer stage II
     Dosage: 125 MG/BODY
     Route: 041
     Dates: start: 201612
  2. CYCLOPHOSPHAMIDE [Concomitant]
     Active Substance: CYCLOPHOSPHAMIDE
     Indication: Breast cancer stage II
     Dosage: 1000 MG/BODY
     Route: 065
     Dates: start: 201612

REACTIONS (5)
  - Haemolysis [Recovering/Resolving]
  - Anaemia [Recovering/Resolving]
  - Jaundice [Recovering/Resolving]
  - Decreased appetite [Recovering/Resolving]
  - Nausea [Recovering/Resolving]

NARRATIVE: CASE EVENT DATE: 20161201
